FAERS Safety Report 10010695 (Version 1)
Quarter: 2014Q1

REPORT INFORMATION
  Report Type: Spontaneous
  Country: AU (occurrence: None)
  Receive Date: 20140311
  Receipt Date: 20140311
  Transmission Date: 20141002
  Serious: Yes (Life-Threatening, Hospitalization)
  Sender: FDA-Public Use
  Company Number: SP07551

PATIENT
  Age: 27 Year
  Sex: Female

DRUGS (1)
  1. OSMOPREP [Suspect]
     Route: 048
     Dates: start: 20140227, end: 20140228

REACTIONS (7)
  - Hypocalcaemia [None]
  - Hyperphosphataemia [None]
  - Tetany [None]
  - Paraesthesia oral [None]
  - Paraesthesia [None]
  - Paraesthesia [None]
  - Paraesthesia [None]
